FAERS Safety Report 10200967 (Version 2)
Quarter: 2014Q2

REPORT INFORMATION
  Report Type: Report from Study
  Country: US (occurrence: US)
  Receive Date: 20140528
  Receipt Date: 20140528
  Transmission Date: 20141212
  Serious: Yes (Disabling, Other)
  Sender: FDA-Public Use
  Company Number: PHEH2014US007956

PATIENT
  Age: 72 Year
  Sex: Male

DRUGS (26)
  1. AFINITOR [Suspect]
     Indication: CARCINOID TUMOUR
     Dosage: 10 MG, ONCE DAILY
     Route: 048
     Dates: start: 20131021, end: 20140123
  2. SANDOSTATIN LAR DEPOT [Suspect]
     Dates: start: 20120913
  3. INFLUENZA VACCINE [Concomitant]
     Dosage: UNK
     Dates: start: 20131104
  4. ASPIRIN [Concomitant]
     Dosage: 325 MG, QD
     Dates: start: 20120817
  5. CARDURA [Concomitant]
     Dosage: 8 MG, QD
     Route: 048
     Dates: start: 20121005
  6. CREON [Concomitant]
     Dosage: 1 DF, QID
     Dates: start: 20140317
  7. GLIPIZIDE [Concomitant]
     Dosage: 1 DF, PRN
     Route: 048
     Dates: start: 20140505
  8. HYDRALAZINE [Concomitant]
     Dosage: 1 DF, TID
     Route: 048
     Dates: start: 20140505
  9. INLYTA [Concomitant]
     Dosage: 1 DF, BID
     Route: 048
     Dates: start: 20140505
  10. LANTUS [Concomitant]
     Route: 058
     Dates: start: 20140505
  11. LEXAPRO [Concomitant]
     Dosage: 1 DF, QD
     Dates: start: 20140521
  12. LISINOPRIL [Concomitant]
     Dosage: 40 MG, QD
  13. MULTI VITAMIN + MINERAL [Concomitant]
     Dosage: 1 DF, QD
     Route: 048
     Dates: start: 20140505
  14. METOPROLOL TARTRATE [Concomitant]
     Dosage: 1 DF, QD
     Route: 048
     Dates: start: 20140505
  15. NIACIN [Concomitant]
     Dosage: 2 DF, TID
     Route: 048
     Dates: start: 20140505
  16. NIACIN [Concomitant]
     Dosage: UNK
  17. NORVASC [Concomitant]
     Dosage: 1 DF, BID
     Route: 048
     Dates: start: 20140505
  18. OMEPRAZOLE [Concomitant]
     Dosage: 1 DF, QD
     Route: 048
     Dates: start: 20140421
  19. POTASSIUM CITRATE [Concomitant]
     Dosage: 2 DF, BID
  20. PREVALITE [Concomitant]
     Dosage: 1 DF, BID
     Route: 048
     Dates: start: 20140505
  21. PROSCAR [Concomitant]
     Dosage: 1 DF, QD
     Route: 048
     Dates: start: 20130716
  22. TRIAMCINOLONE ACETONIDE [Concomitant]
     Dosage: UNK
     Route: 061
     Dates: start: 20140203
  23. VITAMIN D2 [Concomitant]
     Dosage: 1 UNK, UNK
     Dates: start: 20130321
  24. ZOCOR [Concomitant]
     Dosage: 1 DF, QD
     Route: 048
     Dates: start: 20120815
  25. INFLUENZA [Concomitant]
     Dosage: UNK
     Dates: start: 20120612
  26. SUTENT [Concomitant]

REACTIONS (3)
  - Alveolar lung disease [Recovered/Resolved with Sequelae]
  - Malaise [Unknown]
  - Fatigue [Unknown]
